FAERS Safety Report 10635886 (Version 1)
Quarter: 2014Q4

REPORT INFORMATION
  Report Type: Spontaneous
  Country: US (occurrence: US)
  Receive Date: 20141205
  Receipt Date: 20141205
  Transmission Date: 20150529
  Serious: No
  Sender: FDA-Public Use
  Company Number: US-PFIZER INC-2014330859

PATIENT
  Age: 43 Year
  Sex: Female
  Weight: 84 kg

DRUGS (3)
  1. PRISTIQ EXTENDED RELEASE [Suspect]
     Active Substance: DESVENLAFAXINE SUCCINATE
     Indication: DEPRESSION
     Dosage: 50 MG, DAILY
     Route: 048
     Dates: start: 20141114
  2. IRON [Concomitant]
     Active Substance: IRON
     Indication: ANAEMIA
     Dosage: 65 MG, 3X/DAY
     Route: 048
  3. BIOTIN WITH KERATIN [Concomitant]
     Indication: NUTRITIONAL SUPPLEMENTATION
     Dosage: BIOTIN 1000 MICROGRAMS WITH 100 MG OF KERATIN, 1X/DAY
     Route: 048

REACTIONS (4)
  - Female sexual arousal disorder [Not Recovered/Not Resolved]
  - Anorgasmia [Not Recovered/Not Resolved]
  - Vulvovaginal dryness [Not Recovered/Not Resolved]
  - Libido decreased [Not Recovered/Not Resolved]

NARRATIVE: CASE EVENT DATE: 20141123
